FAERS Safety Report 7548829-5 (Version None)
Quarter: 2011Q2

REPORT INFORMATION
  Report Type: 
  Country: None (occurrence: None)
  Receive Date: 20110615
  Receipt Date: 20110104
  Transmission Date: 20111010
  Serious: Yes (Other)
  Sender: FDA-Public Use
  Company Number: US-BAYER-201025743NA

PATIENT
  Age: 16 Year
  Sex: Female
  Weight: 78.912 kg

DRUGS (8)
  1. YAZ [Suspect]
     Indication: MENSTRUATION IRREGULAR
     Dosage: UNK
     Route: 048
     Dates: start: 20050101, end: 20070101
  2. HYDROCODONE BITARTRATE AND ACETAMINOPHEN [Concomitant]
     Dosage: UNK
     Dates: end: 20040101
  3. PROTONIX [Concomitant]
     Dosage: UNK
     Dates: end: 20040101
  4. YASMIN [Suspect]
     Indication: MENSTRUATION IRREGULAR
     Dosage: UNK
     Route: 048
     Dates: start: 20030601, end: 20050101
  5. ZOLOFT [Concomitant]
  6. ALBUTEROL INHALER [Concomitant]
     Dosage: UNK
     Dates: end: 20040101
  7. IBUROFEN [Concomitant]
     Dosage: UNK
     Dates: start: 20050101, end: 20050101
  8. PREVACID [Concomitant]
     Dosage: UNK
     Dates: end: 20040101

REACTIONS (2)
  - PANCREATITIS RELAPSING [None]
  - CHOLECYSTECTOMY [None]
